FAERS Safety Report 6486304-X (Version None)
Quarter: 2009Q4

REPORT INFORMATION
  Report Type: 
  Country: None (occurrence: None)
  Receive Date: 20091209
  Receipt Date: 20090820
  Transmission Date: 20100525
  Serious: No
  Sender: FDA-Public Use
  Company Number: US-AMGEN-KDL357988

PATIENT
  Sex: Female

DRUGS (16)
  1. ENBREL [Suspect]
     Indication: RHEUMATOID ARTHRITIS
     Route: 058
  2. ENBREL [Suspect]
     Indication: PSORIASIS
  3. ENBREL [Suspect]
     Indication: SYSTEMIC LUPUS ERYTHEMATOSUS
  4. METHOTREXATE [Concomitant]
     Route: 048
  5. ASPIRIN [Concomitant]
  6. IMDUR [Concomitant]
  7. CRESTOR [Concomitant]
  8. PLAVIX [Concomitant]
  9. FOLIC ACID [Concomitant]
  10. PRILOSEC [Concomitant]
  11. ESTRADIOL [Concomitant]
  12. MULTI-VITAMINS [Concomitant]
  13. NIASPAN [Concomitant]
  14. VERAPAMIL [Concomitant]
  15. METFORMIN HCL [Concomitant]
  16. LEVOTHYROXINE SODIUM [Concomitant]

REACTIONS (4)
  - ALOPECIA [None]
  - DRY SKIN [None]
  - LOCALISED INFECTION [None]
  - PAIN IN EXTREMITY [None]
